FAERS Safety Report 8204022-4 (Version None)
Quarter: 2012Q1

REPORT INFORMATION
  Report Type: 
  Country: None (occurrence: None)
  Receive Date: 20120313
  Receipt Date: 20120308
  Transmission Date: 20120608
  Serious: No
  Sender: FDA-Public Use
  Company Number: US-PFIZER INC-2012062991

PATIENT
  Sex: Female

DRUGS (4)
  1. NORVASC [Suspect]
  2. BENICAR [Suspect]
  3. TELMISARTAN [Suspect]
  4. CEFADROXIL [Suspect]

REACTIONS (1)
  - SWELLING [None]
